FAERS Safety Report 25499987 (Version 1)
Quarter: 2025Q2

REPORT INFORMATION
  Report Type: Spontaneous
  Country: US (occurrence: None)
  Receive Date: 20250630
  Receipt Date: 20250630
  Transmission Date: 20250716
  Serious: Yes (Other)
  Sender: FDA-CTU
  Company Number: None

PATIENT
  Age: 32 Year
  Sex: Female
  Weight: 81 kg

DRUGS (7)
  1. SERTRALINE [Suspect]
     Active Substance: SERTRALINE HYDROCHLORIDE
     Indication: Anxiety
     Dosage: FREQUENCY : DAILY;?
     Route: 048
  2. ATOMOXETINE [Suspect]
     Active Substance: ATOMOXETINE
  3. GUANFACINE [Suspect]
     Active Substance: GUANFACINE
  4. METHYLPHENIDATE [Suspect]
     Active Substance: METHYLPHENIDATE
  5. PROPRANOLOL [Suspect]
     Active Substance: PROPRANOLOL HYDROCHLORIDE
  6. BUSPIRONE [Suspect]
     Active Substance: BUSPIRONE HYDROCHLORIDE
  7. ESCITALOPRAM [Suspect]
     Active Substance: ESCITALOPRAM OXALATE

REACTIONS (17)
  - Anxiety [None]
  - Fatigue [None]
  - Apathy [None]
  - Weight increased [None]
  - Loss of libido [None]
  - Quality of life decreased [None]
  - Restlessness [None]
  - Attention deficit hyperactivity disorder [None]
  - Dizziness [None]
  - Palpitations [None]
  - Muscle twitching [None]
  - Depersonalisation/derealisation disorder [None]
  - Derealisation [None]
  - Depression [None]
  - Gastrointestinal disorder [None]
  - Suicidal behaviour [None]
  - Withdrawal syndrome [None]

NARRATIVE: CASE EVENT DATE: 20230901
